FAERS Safety Report 5851561-7 (Version None)
Quarter: 2008Q3

REPORT INFORMATION
  Report Type: 
  Country: None (occurrence: None)
  Receive Date: 20080820
  Receipt Date: 20080812
  Transmission Date: 20090109
  Serious: Yes (Hospitalization)
  Sender: FDA-Public Use
  Company Number: GB-ELI_LILLY_AND_COMPANY-GB200804007361

PATIENT
  Sex: Female

DRUGS (1)
  1. PROZAC [Suspect]
     Indication: DEPRESSION
     Dosage: UNK, UNK
     Route: 048
     Dates: start: 20001124, end: 20001202

REACTIONS (1)
  - HYPERSENSITIVITY [None]
